FAERS Safety Report 5847692-8 (Version None)
Quarter: 2008Q3

REPORT INFORMATION
  Report Type: 
  Country: None (occurrence: None)
  Receive Date: 20080818
  Receipt Date: 20080808
  Transmission Date: 20090109
  Serious: Yes (Hospitalization)
  Sender: FDA-Public Use
  Company Number: US-AMGEN-US298583

PATIENT
  Sex: Female

DRUGS (8)
  1. ENBREL [Suspect]
     Indication: RHEUMATOID ARTHRITIS
     Route: 058
     Dates: start: 20030320, end: 20040301
  2. HUMIRA [Suspect]
     Route: 058
     Dates: start: 20050307, end: 20070701
  3. PREDNISONE [Suspect]
     Route: 048
     Dates: start: 20020429
  4. ALLOPURINOL [Concomitant]
     Route: 065
     Dates: start: 20061002
  5. COLCHICINE [Concomitant]
     Route: 065
     Dates: start: 20060814
  6. LYRICA [Concomitant]
     Route: 065
     Dates: start: 20070716
  7. CYMBALTA [Concomitant]
     Route: 065
     Dates: start: 20070716
  8. ZAROXOLYN [Concomitant]
     Route: 065
     Dates: start: 20070716

REACTIONS (2)
  - HYPOKALAEMIA [None]
  - VOMITING [None]
